FAERS Safety Report 16925175 (Version 1)
Quarter: 2019Q4

REPORT INFORMATION
  Report Type: Spontaneous
  Country: GB (occurrence: GB)
  Receive Date: 20191016
  Receipt Date: 20191016
  Transmission Date: 20200122
  Serious: Yes (Death, Hospitalization, Other)
  Sender: FDA-Public Use
  Company Number: GB-MYLANLABS-2019M1097078

PATIENT
  Age: 16 Year
  Sex: Male

DRUGS (11)
  1. AMPHOTERICIN B. [Suspect]
     Active Substance: AMPHOTERICIN B
     Indication: FUSARIUM INFECTION
  2. VORICONAZOLE. [Suspect]
     Active Substance: VORICONAZOLE
     Indication: FUSARIUM INFECTION
     Dosage: 4 MILLIGRAM/KILOGRAM, BID
     Route: 042
  3. AMIKACIN SULFATE. [Suspect]
     Active Substance: AMIKACIN SULFATE
     Indication: KLEBSIELLA BACTERAEMIA
     Dosage: UNK
     Route: 065
  4. VINCRISTINE [Concomitant]
     Active Substance: VINCRISTINE
     Indication: ACUTE LYMPHOCYTIC LEUKAEMIA
     Dosage: UNK
  5. IMIPENEM [Suspect]
     Active Substance: IMIPENEM
     Indication: KLEBSIELLA BACTERAEMIA
     Dosage: UNK
     Route: 065
  6. CYCLOPHOSPHAMIDE. [Concomitant]
     Active Substance: CYCLOPHOSPHAMIDE
     Indication: ACUTE LYMPHOCYTIC LEUKAEMIA
     Dosage: UNK
  7. METHOTREXATE. [Concomitant]
     Active Substance: METHOTREXATE
     Indication: ACUTE LYMPHOCYTIC LEUKAEMIA
     Dosage: UNK
  8. VORICONAZOLE. [Suspect]
     Active Substance: VORICONAZOLE
     Indication: ENDOCARDITIS
     Dosage: 6 MILLIGRAM/KILOGRAM, BID FOR TWO DOSES 12 HOURS APART
     Route: 042
  9. DEXAMETHASONE. [Suspect]
     Active Substance: DEXAMETHASONE
     Indication: ACUTE LYMPHOCYTIC LEUKAEMIA
     Dosage: UNK
     Route: 065
  10. RASBURICASE [Concomitant]
     Active Substance: RASBURICASE
     Dosage: UNK
  11. AMPHOTERICIN B. [Suspect]
     Active Substance: AMPHOTERICIN B
     Indication: ENDOCARDITIS
     Dosage: 1 MILLIGRAM/KILOGRAM, QD FOR FIVE DAYS
     Route: 042

REACTIONS (11)
  - Drug ineffective [Fatal]
  - Mucosal inflammation [Fatal]
  - Skin mass [Fatal]
  - Right atrial hypertrophy [Unknown]
  - Endocarditis [Fatal]
  - Pyrexia [Fatal]
  - Septic shock [Fatal]
  - C-reactive protein increased [Fatal]
  - Cardiac valve vegetation [Fatal]
  - Fusarium infection [Fatal]
  - Bundle branch block right [Unknown]
